FAERS Safety Report 9974160 (Version 1)
Quarter: 2014Q1

REPORT INFORMATION
  Report Type: Report from Study
  Country: US (occurrence: US)
  Receive Date: 20140306
  Receipt Date: 20140306
  Transmission Date: 20141002
  Serious: No
  Sender: FDA-Public Use
  Company Number: US-ABBVIE-13P-163-1158769-00

PATIENT
  Age: 52 Year
  Sex: Female

DRUGS (7)
  1. HUMIRA [Suspect]
     Indication: ANKYLOSING SPONDYLITIS
     Dates: start: 20130808
  2. NEXIUM [Concomitant]
     Indication: GASTROOESOPHAGEAL REFLUX DISEASE
  3. PROZAC [Concomitant]
     Indication: DEPRESSION
  4. PROZAC [Concomitant]
     Indication: ANXIETY
  5. VYTORIN [Concomitant]
     Indication: BLOOD CHOLESTEROL
     Dosage: 10/20 MG
  6. ALEVE [Concomitant]
     Indication: PAIN
  7. CLARITIN [Concomitant]
     Indication: HYPERSENSITIVITY
     Dosage: DAILY

REACTIONS (4)
  - Injection site erythema [Recovering/Resolving]
  - Injection site papule [Recovering/Resolving]
  - Injection site pruritus [Recovering/Resolving]
  - Injection site bruising [Recovering/Resolving]
